FAERS Safety Report 8189114-0 (Version None)
Quarter: 2012Q1

REPORT INFORMATION
  Report Type: 
  Country: None (occurrence: None)
  Receive Date: 20120307
  Receipt Date: 20120222
  Transmission Date: 20120608
  Serious: Yes (Hospitalization)
  Sender: FDA-Public Use
  Company Number: US-RANBAXY-2012US-51949

PATIENT
  Age: 20 Year
  Sex: Male

DRUGS (2)
  1. RISPERIDONE [Suspect]
     Indication: MENTAL RETARDATION
     Dosage: 0.25 MG EACH MORNING AND 1MG EACH EVENING
     Route: 065
  2. GILENYA [Interacting]
     Indication: PRODUCT USED FOR UNKNOWN INDICATION
     Route: 048

REACTIONS (7)
  - MALAISE [None]
  - UNRESPONSIVE TO STIMULI [None]
  - NAUSEA [None]
  - BRADYCARDIA [None]
  - CONVULSION [None]
  - DRUG INTERACTION [None]
  - CARDIAC ARREST [None]
